FAERS Safety Report 18090768 (Version 1)
Quarter: 2020Q3

REPORT INFORMATION
  Report Type: Spontaneous
  Country: US (occurrence: US)
  Receive Date: 20200730
  Receipt Date: 20200730
  Transmission Date: 20201103
  Serious: No
  Sender: FDA-Public Use
  Company Number: US-TEVA-2020-US-1808013

PATIENT
  Sex: Female
  Weight: 76 kg

DRUGS (2)
  1. ATENOLOL. [Suspect]
     Active Substance: ATENOLOL
     Route: 065
  2. LENVIMA [Suspect]
     Active Substance: LENVATINIB
     Indication: THYROID CANCER
     Dosage: 10 MILLIGRAM DAILY; LENVIMA 10MG 5 DAY PK ? COMM
     Route: 048
     Dates: start: 201903

REACTIONS (1)
  - Asthenia [Recovering/Resolving]
